FAERS Safety Report 6028925-4 (Version None)
Quarter: 2009Q1

REPORT INFORMATION
  Report Type: 
  Country: None (occurrence: None)
  Receive Date: 20090102
  Receipt Date: 20081219
  Transmission Date: 20090719
  Serious: Yes (Other)
  Sender: FDA-Public Use
  Company Number: CHNY2008JP04556

PATIENT
  Sex: Male

DRUGS (2)
  1. NICOTINE [Suspect]
     Indication: SMOKING CESSATION THERAPY
     Dosage: 14 MG, QD, TRANSDERMAL
     Route: 062
     Dates: start: 20081217
  2. LEXOTAN (BROMAZEPAM) [Concomitant]

REACTIONS (4)
  - ANGINA PECTORIS [None]
  - DRUG INEFFECTIVE [None]
  - IRRITABILITY [None]
  - TREATMENT NONCOMPLIANCE [None]
